FAERS Safety Report 19615771 (Version 6)
Quarter: 2022Q2

REPORT INFORMATION
  Report Type: Spontaneous
  Country: CH (occurrence: CH)
  Receive Date: 20210727
  Receipt Date: 20220511
  Transmission Date: 20220721
  Serious: Yes (Life-Threatening, Other)
  Sender: FDA-Public Use
  Company Number: CH-BIOGEN-2021BI01033154

PATIENT
  Age: 54 Year
  Sex: Female

DRUGS (2)
  1. TYSABRI [Suspect]
     Active Substance: NATALIZUMAB
     Indication: Relapsing-remitting multiple sclerosis
     Route: 042
     Dates: start: 2011, end: 2017
  2. TYSABRI [Suspect]
     Active Substance: NATALIZUMAB
     Route: 042
     Dates: start: 2017, end: 20210611

REACTIONS (3)
  - Progressive multifocal leukoencephalopathy [Unknown]
  - Immune reconstitution inflammatory syndrome [Unknown]
  - Prescribed underdose [Recovered/Resolved]

NARRATIVE: CASE EVENT DATE: 20170101
